FAERS Safety Report 16077351 (Version 1)
Quarter: 2019Q1

REPORT INFORMATION
  Report Type: Spontaneous
  Country: NL (occurrence: NL)
  Receive Date: 20190315
  Receipt Date: 20190315
  Transmission Date: 20190418
  Serious: Yes (Other)
  Sender: FDA-Public Use
  Company Number: NL-TEVA-2019-NL-1024118

PATIENT
  Sex: Female
  Weight: 57 kg

DRUGS (4)
  1. MONTELUKLAST [Concomitant]
  2. SPIRIVA [Concomitant]
     Active Substance: TIOTROPIUM BROMIDE MONOHYDRATE
  3. CINQAERO - OPLOSSING VOOR INFUUS, 10 MG/ML [Suspect]
     Active Substance: RESLIZUMAB
     Indication: ASTHMA
     Dosage: 1X PER 4W 175MG
     Dates: end: 20180201
  4. FOSTER [Concomitant]
     Active Substance: BECLOMETHASONE\FORMOTEROL

REACTIONS (3)
  - Maternal exposure during pregnancy [Unknown]
  - Abortion spontaneous [None]
  - Premature delivery [Unknown]
